FAERS Safety Report 16652555 (Version 1)
Quarter: 2019Q3

REPORT INFORMATION
  Report Type: Spontaneous
  Country: US (occurrence: US)
  Receive Date: 20190731
  Receipt Date: 20190731
  Transmission Date: 20191004
  Serious: Yes (Disabling)
  Sender: FDA-Public Use
  Company Number: None

PATIENT
  Age: 73 Year
  Sex: Female
  Weight: 74.25 kg

DRUGS (2)
  1. KADCYLA [Suspect]
     Active Substance: ADO-TRASTUZUMAB EMTANSINE
     Indication: HER-2 POSITIVE BREAST CANCER
     Dates: start: 20190326, end: 20190709
  2. KADCYLA [Suspect]
     Active Substance: ADO-TRASTUZUMAB EMTANSINE
     Indication: BREAST CANCER METASTATIC
     Dates: start: 20190326, end: 20190709

REACTIONS (7)
  - Anaemia [None]
  - Decreased appetite [None]
  - Neuropathy peripheral [None]
  - Fatigue [None]
  - Hepatotoxicity [None]
  - Platelet count decreased [None]
  - Constipation [None]

NARRATIVE: CASE EVENT DATE: 20190709
